FAERS Safety Report 19133799 (Version 1)
Quarter: 2021Q2

REPORT INFORMATION
  Report Type: Report from Study
  Country: GB (occurrence: GB)
  Receive Date: 20210414
  Receipt Date: 20210414
  Transmission Date: 20210717
  Serious: Yes (Hospitalization)
  Sender: FDA-Public Use
  Company Number: GB-SUN PHARMACEUTICAL INDUSTRIES LTD-2021RR-291126

PATIENT
  Age: 70 Year
  Sex: Male

DRUGS (1)
  1. ASPIRIN. [Suspect]
     Active Substance: ASPIRIN
     Indication: SPINAL SUBDURAL HAEMATOMA
     Dosage: UNK
     Route: 065

REACTIONS (2)
  - Paraparesis [Unknown]
  - Pain [Unknown]
